FAERS Safety Report 13232023 (Version 1)
Quarter: 2017Q1

REPORT INFORMATION
  Report Type: Spontaneous
  Country: CH (occurrence: CH)
  Receive Date: 20170214
  Receipt Date: 20170214
  Transmission Date: 20170428
  Serious: Yes (Life-Threatening, Hospitalization)
  Sender: FDA-Public Use
  Company Number: CH-ASTRAZENECA-2017SE13834

PATIENT
  Age: 29087 Day
  Sex: Male
  Weight: 86 kg

DRUGS (7)
  1. METO ZEROK [Concomitant]
     Active Substance: METOPROLOL SUCCINATE
  2. SORTIS [Concomitant]
     Active Substance: ATORVASTATIN
  3. BRILIQUE [Suspect]
     Active Substance: TICAGRELOR
     Indication: CORONARY ARTERY BYPASS
     Route: 048
     Dates: start: 201605
  4. DAFALGAN [Concomitant]
     Active Substance: ACETAMINOPHEN
     Dosage: 500.0MG AS REQUIRED
  5. ASPIRIN CARDIO [Interacting]
     Active Substance: ASPIRIN
     Indication: CORONARY ARTERY DISEASE
     Route: 065
  6. CO CANDESARTAN [Concomitant]
  7. PANTOZOL [Concomitant]
     Active Substance: PANTOPRAZOLE SODIUM

REACTIONS (9)
  - Fall [Unknown]
  - Drug interaction [Recovered/Resolved]
  - Epilepsy [Recovering/Resolving]
  - Brain injury [Recovering/Resolving]
  - Craniocerebral injury [Recovering/Resolving]
  - Haemorrhagic anaemia [Recovering/Resolving]
  - Cardiac arrest [Recovered/Resolved]
  - Presyncope [Unknown]
  - Traumatic haemorrhage [Recovered/Resolved]

NARRATIVE: CASE EVENT DATE: 20170107
